FAERS Safety Report 5633710-9 (Version None)
Quarter: 2008Q1

REPORT INFORMATION
  Report Type: 
  Country: None (occurrence: None)
  Receive Date: 20080219
  Receipt Date: 20080130
  Transmission Date: 20080703
  Serious: Yes (Other)
  Sender: FDA-Public Use
  Company Number: DSA_31389_2008

PATIENT
  Age: 21 Year
  Sex: Female

DRUGS (1)
  1. LORAZEPAM [Suspect]
     Indication: DRUG USE FOR UNKNOWN INDICATION
     Dosage: (1 DF TID DF ORAL)
     Route: 048
     Dates: end: 20080101

REACTIONS (4)
  - CRYING [None]
  - DRUG WITHDRAWAL SYNDROME [None]
  - PERSONALITY CHANGE [None]
  - SUICIDAL IDEATION [None]
